FAERS Safety Report 6278178-7 (Version None)
Quarter: 2009Q3

REPORT INFORMATION
  Report Type: 
  Country: None (occurrence: None)
  Receive Date: 20090722
  Receipt Date: 20070618
  Transmission Date: 20100115
  Serious: Yes (Hospitalization, Other)
  Sender: FDA-Public Use
  Company Number: US-ASTRAZENECA-2006UW25348

PATIENT
  Age: 45 Year
  Sex: Male
  Weight: 126.6 kg

DRUGS (18)
  1. SEROQUEL [Suspect]
     Indication: MENTAL DISORDER
     Dosage: 100 TO 300 MG
     Route: 048
     Dates: start: 20010521
  2. SEROQUEL [Suspect]
     Route: 048
     Dates: start: 20020101
  3. RISPERDAL [Concomitant]
     Dosage: 0.5 TO 6 MG
     Dates: start: 20041020
  4. ZYPREXA [Concomitant]
  5. DIOVAN [Concomitant]
     Dosage: 80 TO 240 MG
     Dates: start: 20041212
  6. PROCARDIA XL [Concomitant]
     Dosage: 30 TO 90 MG
     Dates: start: 19991207
  7. TRAZODONE [Concomitant]
     Dates: start: 20040901
  8. MIRTAZAPINE [Concomitant]
     Dates: start: 20041020
  9. AMITRIPTYLINE HCL [Concomitant]
     Dates: start: 19991206
  10. DEPAKOTE [Concomitant]
     Dosage: 250 TO 500 MG TABLET EC
     Dates: start: 19980922
  11. GLIPIZIDE [Concomitant]
     Dates: start: 20050122
  12. FLUPHENAZINE [Concomitant]
     Dosage: 1 TO 5 MG
     Dates: start: 19991206
  13. ALBUTEROL [Concomitant]
     Dosage: 90 MCG PUFF QID
     Dates: start: 19970515
  14. HYDROCODONE BITARTRATE + ACETAMINOPHEN [Concomitant]
     Dosage: 5/ 500
     Dates: start: 20000121
  15. INSULIN [Concomitant]
     Dosage: 240 TO 250 UNITS
     Dates: start: 20050909
  16. LANTUS [Concomitant]
     Dates: start: 20070524
  17. NOVOLOG [Concomitant]
     Dates: start: 20070524
  18. METFORMIN HCL [Concomitant]
     Dosage: 500 TO 1000 MG
     Dates: start: 20041212

REACTIONS (6)
  - DIABETES MELLITUS [None]
  - DIABETES MELLITUS INADEQUATE CONTROL [None]
  - DIABETIC KETOACIDOSIS [None]
  - DIABETIC NEUROPATHY [None]
  - INSULIN RESISTANT DIABETES [None]
  - TYPE 1 DIABETES MELLITUS [None]
